FAERS Safety Report 4760294-X (Version None)
Quarter: 2005Q3

REPORT INFORMATION
  Report Type: 
  Country: None (occurrence: None)
  Receive Date: 20050831
  Receipt Date: 20050819
  Transmission Date: 20060218
  Serious: Yes (Other)
  Sender: FDA-Public Use
  Company Number: 2005119437

PATIENT
  Age: 71 Year
  Sex: Male
  Weight: 69 kg

DRUGS (7)
  1. NEURONTIN [Suspect]
     Indication: DIABETIC NEUROPATHY
     Dosage: 1800 MG (600 MG, 3 IN 1 D)
     Dates: start: 20040701
  2. ISOTEN (BISOPROLOL FUMARATE) [Concomitant]
  3. RYDENE (NICARDIPINE HYDROCHLORIDE) [Concomitant]
  4. ASPIRIN [Concomitant]
  5. EUGLUCON (GLIBENCLAMIDE) [Concomitant]
  6. GLUCOPHAGE [Concomitant]
  7. ALL OTHER THERAPEUTIC PRODUCTS (ALL OTHER THERAPEUTIC PRODUCTS) [Concomitant]

REACTIONS (2)
  - CORONARY ARTERY STENOSIS [None]
  - PAIN IN JAW [None]
